FAERS Safety Report 9132452 (Version 1)
Quarter: 2013Q1

REPORT INFORMATION
  Report Type: Spontaneous
  Country: US (occurrence: US)
  Receive Date: 20130301
  Receipt Date: 20130301
  Transmission Date: 20140127
  Serious: Yes (Hospitalization)
  Sender: FDA-Public Use
  Company Number: US-GLAXOSMITHKLINE-A1013537A

PATIENT
  Age: 60 Year
  Sex: Male

DRUGS (3)
  1. LAMICTAL XR [Suspect]
     Indication: PARTIAL SEIZURES
     Dates: start: 201302, end: 201302
  2. KEPPRA [Concomitant]
  3. NEURONTIN [Concomitant]

REACTIONS (5)
  - Stevens-Johnson syndrome [Not Recovered/Not Resolved]
  - Influenza like illness [Unknown]
  - Rash [Unknown]
  - Ocular hyperaemia [Unknown]
  - Mouth ulceration [Unknown]
